FAERS Safety Report 20029661 (Version 1)
Quarter: 2021Q4

REPORT INFORMATION
  Report Type: Spontaneous
  Country: IN (occurrence: IN)
  Receive Date: 20211103
  Receipt Date: 20211103
  Transmission Date: 20220303
  Serious: Yes (Death)
  Sender: FDA-Public Use
  Company Number: IN-PFIZER INC-202101128405

PATIENT
  Age: 56 Year
  Sex: Female

DRUGS (3)
  1. PALBOCICLIB [Suspect]
     Active Substance: PALBOCICLIB
     Dosage: 125 MG, 1X/DAY
     Route: 048
     Dates: start: 20210713
  2. ZOLDONAT [Concomitant]
     Dosage: 4 MG
  3. FULVESTRANT [Concomitant]
     Active Substance: FULVESTRANT
     Dosage: 500 MG ONCE A MONTH
     Route: 030

REACTIONS (5)
  - Death [Fatal]
  - Neoplasm progression [Unknown]
  - Pain in extremity [Unknown]
  - Bone pain [Unknown]
  - Off label use [Unknown]

NARRATIVE: CASE EVENT DATE: 20211009
